FAERS Safety Report 7323713-0 (Version None)
Quarter: 2011Q1

REPORT INFORMATION
  Report Type: 
  Country: None (occurrence: None)
  Receive Date: 20110301
  Receipt Date: 20110216
  Transmission Date: 20110831
  Serious: Yes (Other)
  Sender: FDA-Public Use
  Company Number: TW-PFIZER INC-2011037535

PATIENT
  Age: 25 Year
  Sex: Male

DRUGS (3)
  1. ARIPIPRAZOLE [Suspect]
     Dosage: 3.75 MG/DAY
  2. SERTRALINE HYDROCHLORIDE [Suspect]
     Dosage: 25 MG/DAY
  3. ARIPIPRAZOLE [Suspect]
     Dosage: 7.5 MG/DAY

REACTIONS (4)
  - RESTLESSNESS [None]
  - MALAISE [None]
  - AKATHISIA [None]
  - URINARY HESITATION [None]
